FAERS Safety Report 6521989-0 (Version None)
Quarter: 2009Q4

REPORT INFORMATION
  Report Type: 
  Country: None (occurrence: None)
  Receive Date: 20091230
  Receipt Date: 20091222
  Transmission Date: 20100525
  Serious: Yes (Other)
  Sender: FDA-Public Use
  Company Number: US-ASTRAZENECA-2009SE33157

PATIENT
  Age: 985 Month
  Sex: Male
  Weight: 77.1 kg

DRUGS (1)
  1. SYMBICORT [Suspect]
     Dosage: 160 BID
     Route: 055
     Dates: start: 20091102

REACTIONS (2)
  - ANEURYSM [None]
  - COUGH [None]
